FAERS Safety Report 25335958 (Version 1)
Quarter: 2025Q2

REPORT INFORMATION
  Report Type: Spontaneous
  Country: US (occurrence: None)
  Receive Date: 20250519
  Receipt Date: 20250519
  Transmission Date: 20250717
  Serious: No
  Sender: FDA-CTU
  Company Number: None

PATIENT
  Sex: Female

DRUGS (1)
  1. CUVITRU [Suspect]
     Active Substance: HUMAN IMMUNOGLOBULIN G
     Indication: IgG deficiency
     Route: 058
     Dates: start: 20250408

REACTIONS (10)
  - Dizziness [None]
  - Dizziness [None]
  - Infusion related reaction [None]
  - Dizziness [None]
  - Pain in extremity [None]
  - Infusion site irritation [None]
  - Pain [None]
  - Chills [None]
  - Nausea [None]
  - Fatigue [None]
